FAERS Safety Report 8276675-6 (Version None)
Quarter: 2012Q2

REPORT INFORMATION
  Report Type: 
  Country: None (occurrence: None)
  Receive Date: 20120412
  Receipt Date: 20120412
  Transmission Date: 20120825
  Serious: Yes (Hospitalization)
  Sender: FDA-Public Use
  Company Number: None

PATIENT
  Age: 81 Year
  Sex: Female
  Weight: 91 kg

DRUGS (11)
  1. POTASSIUM CHLORIDE [Concomitant]
     Route: 048
  2. LACTOBACILLUS [Concomitant]
     Route: 048
  3. INSULIN [Suspect]
     Indication: DIABETES MELLITUS
     Dosage: 20 UNITS
     Route: 058
  4. SENNA [Concomitant]
     Route: 048
  5. NIACIN [Concomitant]
     Route: 048
  6. FLUTICASONE/SALMETEROL INHALER [Concomitant]
  7. ASPIRIN [Concomitant]
     Route: 048
  8. ALBUTEROL/IPRATROPIUM NEBULIZER [Concomitant]
  9. LISINOPRIL [Concomitant]
     Route: 048
  10. FUROSEMIDE [Concomitant]
     Route: 048
  11. MULTI-VITAMIN [Concomitant]
     Route: 048

REACTIONS (6)
  - PNEUMONIA [None]
  - UNRESPONSIVE TO STIMULI [None]
  - FALL [None]
  - RENAL FAILURE ACUTE [None]
  - BLOOD GLUCOSE DECREASED [None]
  - EYE INJURY [None]
